FAERS Safety Report 14004024 (Version 1)
Quarter: 2017Q3

REPORT INFORMATION
  Report Type: Spontaneous
  Country: US (occurrence: US)
  Receive Date: 20170922
  Receipt Date: 20170922
  Transmission Date: 20171128
  Serious: No
  Sender: FDA-Public Use
  Company Number: US-JNJFOC-20170712856

PATIENT
  Age: 52 Year
  Sex: Male
  Weight: 92.99 kg

DRUGS (1)
  1. LEVAQUIN [Suspect]
     Active Substance: LEVOFLOXACIN
     Indication: OTITIS MEDIA
     Route: 048
     Dates: start: 20170620, end: 20170629

REACTIONS (1)
  - Trismus [Recovering/Resolving]

NARRATIVE: CASE EVENT DATE: 201706
